FAERS Safety Report 6260285-6 (Version None)
Quarter: 2009Q3

REPORT INFORMATION
  Report Type: 
  Country: None (occurrence: None)
  Receive Date: 20090708
  Receipt Date: 20090629
  Transmission Date: 20100115
  Serious: Yes (Hospitalization)
  Sender: FDA-Public Use
  Company Number: DK-B.I. PHARMACEUTICALS,INC./RIDGEFIELD-2009-SW-00079DB

PATIENT
  Sex: Male
  Weight: 80 kg

DRUGS (3)
  1. ASPIRIN AND DIPYRIDAMOLE [Suspect]
     Indication: THROMBOSIS PROPHYLAXIS
     Dosage: STRENGTH: 200+25 MG DAILY DOSE: 400+50 MG
     Dates: start: 20090201
  2. SIMVASTATIN [Suspect]
     Indication: PROPHYLAXIS
     Dosage: 40 MG
     Dates: start: 20090201, end: 20090213
  3. DICILLIN [Concomitant]
     Dosage: 1500 MG
     Dates: start: 20090201, end: 20090201

REACTIONS (2)
  - GOUTY ARTHRITIS [None]
  - MYALGIA [None]
